FAERS Safety Report 6382842-9 (Version None)
Quarter: 2009Q3

REPORT INFORMATION
  Report Type: 
  Country: None (occurrence: None)
  Receive Date: 20090928
  Receipt Date: 20090928
  Transmission Date: 20100115
  Serious: Yes (Other)
  Sender: FDA-Public Use
  Company Number: None

PATIENT
  Age: 64 Year
  Sex: Female

DRUGS (6)
  1. (DEXMEDETOMIDINE) [Suspect]
     Indication: SEDATION
     Dosage: .7 MCG/KG/HR, INRAVENOUS
     Route: 042
     Dates: start: 20090212, end: 20090212
  2. NAROPIN [Suspect]
     Dosage: 20 ML, INTRAVENOUS
     Route: 042
     Dates: start: 20090212, end: 20090212
  3. (DORMICUM /00036201/) [Suspect]
     Indication: PREMEDICATION
     Dosage: 7.5 MG, ORAL
     Route: 048
     Dates: start: 20090212, end: 20090212
  4. (HORMONE NOS) [Concomitant]
  5. (VITAMINS) [Concomitant]
  6. (CORENZA C) [Concomitant]

REACTIONS (1)
  - DYSKINESIA [None]
